FAERS Safety Report 12973337 (Version 1)
Quarter: 2016Q4

REPORT INFORMATION
  Report Type: Report from Study
  Country: US (occurrence: US)
  Receive Date: 20161124
  Receipt Date: 20161124
  Transmission Date: 20170207
  Serious: Yes (Other)
  Sender: FDA-Public Use
  Company Number: US-ROCHE-1849262

PATIENT
  Age: 97 Year
  Sex: Male

DRUGS (18)
  1. ALTEPLASE [Suspect]
     Active Substance: ALTEPLASE
     Indication: PLEURAL INFECTION
     Dosage: 50 ML OF 0.9 PERCENT NACL
     Route: 034
  2. ACETAMINOPHEN. [Concomitant]
     Active Substance: ACETAMINOPHEN
  3. ASPIRIN. [Concomitant]
     Active Substance: ASPIRIN
  4. CETIRIZINE [Concomitant]
     Active Substance: CETIRIZINE HYDROCHLORIDE
  5. DIGOXIN. [Concomitant]
     Active Substance: DIGOXIN
  6. TRAMADOL. [Concomitant]
     Active Substance: TRAMADOL
  7. ALBUTEROL. [Concomitant]
     Active Substance: ALBUTEROL
  8. GABAPENTIN. [Concomitant]
     Active Substance: GABAPENTIN
  9. IPRATROPIUM [Concomitant]
     Active Substance: IPRATROPIUM
  10. NYSTATIN. [Concomitant]
     Active Substance: NYSTATIN
  11. HEPARIN [Concomitant]
     Active Substance: HEPARIN SODIUM
     Dosage: DOSE: 5000 U
     Route: 058
  12. COUMADIN [Concomitant]
     Active Substance: WARFARIN SODIUM
     Indication: ATRIAL FIBRILLATION
  13. LEVOTHYROXINE. [Concomitant]
     Active Substance: LEVOTHYROXINE
  14. TORSEMIDE. [Concomitant]
     Active Substance: TORSEMIDE
  15. DORNASE ALFA [Suspect]
     Active Substance: DORNASE ALFA
     Indication: PLEURAL INFECTION
     Route: 034
  16. AMIODARONE [Concomitant]
     Active Substance: AMIODARONE
  17. TAMSULOSIN [Concomitant]
     Active Substance: TAMSULOSIN
  18. VANCOMYCIN [Concomitant]
     Active Substance: VANCOMYCIN

REACTIONS (1)
  - Haemothorax [Recovering/Resolving]
